FAERS Safety Report 20671716 (Version 2)
Quarter: 2022Q2

REPORT INFORMATION
  Report Type: Other
  Country: TH (occurrence: TH)
  Receive Date: 20220405
  Receipt Date: 20220418
  Transmission Date: 20220721
  Serious: Yes (Life-Threatening, Hospitalization, Disabling, Other)
  Sender: FDA-Public Use
  Company Number: TH-DENTSPLY-2022SCDP000078

PATIENT
  Age: 32 Year
  Sex: Male
  Weight: 49 kg

DRUGS (3)
  1. LIDOCAINE [Suspect]
     Active Substance: LIDOCAINE
     Indication: Liposuction
     Dosage: 2400 MILLIGRAM TOTAL 2 % LIDOCAINE (2% LIDOCAINE 60 ML IN 500 ML OF RINGER^S LACTATE SOLUTION (FINAL
     Route: 042
  2. RINGER LACTATE [CALCIUM CHLORIDE;POTASSIUM CHLORIDE;SODIUM CHLORIDE;SO [Concomitant]
     Indication: Liposuction
     Dosage: 1000 MILLILITER TOTAL (500 ML OF RINGER^S LACTATE SOLUTION AT THE BACK OF BOTH THIGHS AND 500-ML WET
     Route: 042
  3. EPINEPHRINE [Concomitant]
     Active Substance: EPINEPHRINE
     Indication: Liposuction
     Dosage: 0.4 MILLIGRAM TOTAL (0.2 MG IN 500 ML OF RINGER^S LACTATE SOLUTION SUBCUTANEOUSLY AT THE BACK OF BOT
     Route: 042

REACTIONS (11)
  - Hypoxic-ischaemic encephalopathy [None]
  - Sinus tachycardia [Recovered/Resolved]
  - Electrocardiogram QT prolonged [Recovered/Resolved]
  - Incorrect route of product administration [Recovered/Resolved]
  - Accidental exposure to product [Recovered/Resolved]
  - Accidental overdose [Recovered/Resolved]
  - Cardiac arrest [Recovered/Resolved]
  - Pulseless electrical activity [Recovered/Resolved]
  - Generalised tonic-clonic seizure [Recovered/Resolved]
  - Toxicity to various agents [Recovered/Resolved]
  - Metabolic acidosis [Recovered/Resolved]
